FAERS Safety Report 7671719-4 (Version None)
Quarter: 2011Q3

REPORT INFORMATION
  Report Type: 
  Country: None (occurrence: None)
  Receive Date: 20110809
  Receipt Date: 20110725
  Transmission Date: 20111222
  Serious: No
  Sender: FDA-Public Use
  Company Number: US-ROXANE LABORATORIES, INC.-2011-RO-01108RO

PATIENT
  Sex: Female

DRUGS (6)
  1. AMLODIPINE [Concomitant]
  2. DIOVAN [Concomitant]
  3. POTASSIUM [Concomitant]
     Dosage: 10 MEQ
  4. AMITRIPTYLINE HCL [Concomitant]
  5. LORAZEPAM [Concomitant]
  6. FLUTICASONE PROPIONATE [Suspect]
     Route: 045
     Dates: start: 20110329

REACTIONS (2)
  - LIP SWELLING [None]
  - PRURITUS [None]
